FAERS Safety Report 7963391-0 (Version None)
Quarter: 2011Q4

REPORT INFORMATION
  Report Type: 
  Country: None (occurrence: None)
  Receive Date: 20111205
  Receipt Date: 20111118
  Transmission Date: 20120403
  Serious: Yes (Hospitalization)
  Sender: FDA-Public Use
  Company Number: 2011110063

PATIENT
  Age: 26 Year
  Sex: Male
  Weight: 67 kg

DRUGS (1)
  1. MESALAMINE [Suspect]
     Indication: COLITIS ULCERATIVE
     Dosage: 2250 MG, DAILY

REACTIONS (3)
  - HYPERSENSITIVITY [None]
  - LYMPHOCYTE STIMULATION TEST POSITIVE [None]
  - EOSINOPHILIC PNEUMONIA [None]
